FAERS Safety Report 11374783 (Version 1)
Quarter: 2015Q3

REPORT INFORMATION
  Report Type: Not Available
  Country: US (occurrence: US)
  Receive Date: 20150813
  Receipt Date: 20150813
  Transmission Date: 20151125
  Serious: No
  Sender: FDA-Public Use
  Company Number: US-LUPIN PHARMACEUTICALS INC.-E2B_00003565

PATIENT
  Age: 4 Month
  Sex: Female
  Weight: 7.26 kg

DRUGS (2)
  1. CULTURELLE [Concomitant]
     Active Substance: LACTOBACILLUS RHAMNOSUS
     Indication: PRODUCT USED FOR UNKNOWN INDICATION
     Route: 065
  2. FAMOTIDINE FOR ORAL SUSPENSION USP 40MG/5ML [Suspect]
     Active Substance: FAMOTIDINE
     Indication: GASTROOESOPHAGEAL REFLUX DISEASE
     Dates: start: 20150423, end: 20150426

REACTIONS (1)
  - Crying [Recovered/Resolved]

NARRATIVE: CASE EVENT DATE: 20150423
